FAERS Safety Report 7759176-0 (Version None)
Quarter: 2011Q3

REPORT INFORMATION
  Report Type: 
  Country: None (occurrence: None)
  Receive Date: 20110919
  Receipt Date: 20110915
  Transmission Date: 20111222
  Serious: Yes (Hospitalization)
  Sender: FDA-Public Use
  Company Number: PHHY2011BR80680

PATIENT
  Age: 35 Year
  Sex: Male

DRUGS (9)
  1. CARBOLITIUM [Concomitant]
     Dosage: 1200 MG, DAILY
  2. TRILEPTAL [Suspect]
     Dosage: UNK UKN, UNK
  3. CLONAZEPAM [Concomitant]
     Dosage: UNK UKN, UNK
  4. DEPAKOTE [Concomitant]
     Dosage: UNK UKN, UNK
  5. ZYPREXA [Concomitant]
     Dosage: UNK UKN, UNK
  6. INVEGA [Concomitant]
     Dosage: UNK UKN, UNK
  7. TEGRETOL-XR [Suspect]
     Dosage: 400 MG, UNK
  8. PURAN [Concomitant]
     Dosage: UNK UKN, UNK
  9. CITALOPRAM HYDROBROMIDE [Concomitant]
     Dosage: 2 DF, UNK

REACTIONS (7)
  - DEPRESSION [None]
  - VOMITING [None]
  - HAEMORRHAGE [None]
  - DELIRIUM [None]
  - NAUSEA [None]
  - MANIA [None]
  - HYPOTENSION [None]
